FAERS Safety Report 5245125-6 (Version None)
Quarter: 2007Q1

REPORT INFORMATION
  Report Type: 
  Country: None (occurrence: None)
  Receive Date: 20070223
  Receipt Date: 20070209
  Transmission Date: 20070707
  Serious: Yes (Hospitalization)
  Sender: FDA-Public Use
  Company Number: JP-BRISTOL-MYERS SQUIBB COMPANY-13682778

PATIENT
  Age: 73 Year
  Sex: Male

DRUGS (7)
  1. GATIFLO TABS 100 MG [Suspect]
     Indication: URINARY TRACT INFECTION
     Dosage: NARRATIVE STATES 400 MG TWICE A DAY BUT CODED CIOMS STATES 400 MG/DAY
     Route: 048
     Dates: start: 20070206, end: 20070208
  2. DIOVAN [Concomitant]
     Route: 048
     Dates: start: 20060808
  3. ASPIRIN [Concomitant]
     Route: 048
     Dates: start: 20060808
  4. TEGRETOL [Concomitant]
     Route: 048
     Dates: start: 20060808
  5. GRAMALIL [Concomitant]
     Route: 048
     Dates: start: 20060808
  6. PANTETHINE [Concomitant]
     Route: 048
     Dates: start: 20060808
  7. MAGNESIUM OXIDE [Concomitant]
     Route: 048
     Dates: start: 20060808

REACTIONS (1)
  - HYPOGLYCAEMIA [None]
